FAERS Safety Report 7652565-4 (Version None)
Quarter: 2011Q3

REPORT INFORMATION
  Report Type: 
  Country: None (occurrence: None)
  Receive Date: 20110803
  Receipt Date: 20110726
  Transmission Date: 20111222
  Serious: Yes (Other)
  Sender: FDA-Public Use
  Company Number: PT-BRISTOL-MYERS SQUIBB COMPANY-15852478

PATIENT
  Age: 46 Year
  Sex: Female

DRUGS (3)
  1. XANAX [Concomitant]
  2. ZOLOFT [Concomitant]
     Dosage: 1 DF = 50 UNIT NOT MENTIONED
  3. DASATINIB [Suspect]
     Dosage: ALSO TAKEN 70 MG
     Dates: start: 20070101, end: 20081001

REACTIONS (2)
  - UVEITIS [None]
  - PLEURAL EFFUSION [None]
